FAERS Safety Report 20165630 (Version 4)
Quarter: 2022Q1

REPORT INFORMATION
  Report Type: Report from Study
  Country: MX (occurrence: MX)
  Receive Date: 20211209
  Receipt Date: 20220205
  Transmission Date: 20220423
  Serious: No
  Sender: FDA-Public Use
  Company Number: MX-NOVARTISPH-NVSC2021MX272980

PATIENT
  Age: 34 Year
  Sex: Female
  Weight: 64 kg

DRUGS (5)
  1. GILENYA [Suspect]
     Active Substance: FINGOLIMOD HYDROCHLORIDE
     Indication: Multiple sclerosis
     Dosage: 0.5 MG, QD
     Route: 048
     Dates: start: 20211117, end: 20211214
  2. GILENYA [Suspect]
     Active Substance: FINGOLIMOD HYDROCHLORIDE
     Dosage: 0.5 MG
     Route: 048
     Dates: start: 20220120
  3. INTERFERON [Concomitant]
     Active Substance: INTERFERON
     Indication: Multiple sclerosis
     Dosage: 12000 IU
     Route: 030
     Dates: start: 2019, end: 202111
  4. INTERFERON [Concomitant]
     Active Substance: INTERFERON
     Dosage: 1200 IU, EVERY 3RD DAY
     Route: 058
     Dates: start: 20211214, end: 20220120
  5. AMITRIPTYLINE [Concomitant]
     Active Substance: AMITRIPTYLINE
     Indication: Bladder disorder
     Dosage: 1 DOSAGE FORM, QD
     Route: 048
     Dates: start: 2019

REACTIONS (10)
  - Dizziness [Recovered/Resolved]
  - Dry mouth [Recovered/Resolved]
  - Hypersomnia [Recovered/Resolved]
  - Decreased appetite [Recovered/Resolved]
  - COVID-19 [Recovered/Resolved]
  - Oropharyngeal pain [Not Recovered/Not Resolved]
  - Pain in extremity [Not Recovered/Not Resolved]
  - Arthralgia [Recovering/Resolving]
  - Nausea [Recovered/Resolved]
  - Product supply issue [Unknown]

NARRATIVE: CASE EVENT DATE: 20211117
